FAERS Safety Report 8458811 (Version 6)
Quarter: 2012Q4

REPORT INFORMATION
  Report Type: 
  Country: US (occurrence: US)
  Receive Date: 20120314
  Receipt Date: 20121109
  Transmission Date: 20130627
  Serious: Yes (Death, Hospitalization)
  Sender: FDA-Public Use
  Company Number: US-ACTELION-A-US2012-59767

PATIENT
  Age: 51 Year
  Sex: Male

DRUGS (31)
  1. VELETRI [Suspect]
     Indication: PULMONARY ARTERIAL HYPERTENSION
     Dosage: 14 ng/kg, per min
     Route: 042
     Dates: start: 20120113, end: 20120422
  2. VELETRI [Suspect]
     Dosage: 16 ng/kg, per min
     Route: 042
     Dates: start: 201203
  3. VELETRI [Suspect]
     Dosage: 21 ng/kg, per min
     Route: 042
     Dates: start: 201203, end: 201203
  4. VELETRI [Suspect]
     Dosage: 13 ng/kg, UNK
     Route: 042
     Dates: start: 201203
  5. VELETRI [Suspect]
     Dosage: 14 ng/kg, per min
     Route: 042
     Dates: start: 20111027
  6. VELETRI [Suspect]
     Dosage: 12 ng/kg, per min
     Route: 042
  7. VELETRI [Suspect]
     Dosage: 6.3 ng/kg, per min
     Route: 042
  8. TRACLEER [Suspect]
     Indication: PULMONARY ARTERIAL HYPERTENSION
     Dosage: 125 mg, bid
     Route: 048
     Dates: start: 20071019
  9. TRACLEER [Suspect]
     Dosage: 62.5 mg, bid
     Route: 048
     Dates: start: 20070921
  10. LASIX [Concomitant]
  11. COUMADIN [Concomitant]
  12. PLAVIX [Concomitant]
  13. ASPIRIN [Concomitant]
  14. OXYGEN [Concomitant]
  15. ADVAIR [Concomitant]
  16. ALPRAZOLAM [Concomitant]
  17. CLONAZEPAM [Concomitant]
  18. CRESTOR [Concomitant]
  19. FLOMAX [Concomitant]
  20. GABAPENTIN [Concomitant]
  21. GLIMEPIRIDE [Concomitant]
  22. KLOR-CON [Concomitant]
  23. LEVEMIR [Concomitant]
  24. METOLAZONE [Concomitant]
  25. NEXIUM [Concomitant]
  26. NOVOLOG [Concomitant]
  27. OMEGA 3 FISH OIL [Concomitant]
  28. PAROXETINE [Concomitant]
  29. SPIRIVA [Concomitant]
  30. SPIRONOLACTONE [Concomitant]
  31. ZETIA [Concomitant]

REACTIONS (19)
  - Pulmonary arterial hypertension [Fatal]
  - Drug administration error [Recovering/Resolving]
  - Cardiac failure congestive [Fatal]
  - Blood pressure decreased [Fatal]
  - Hypotension [Recovering/Resolving]
  - Headache [Fatal]
  - Flushing [Fatal]
  - Vision blurred [Unknown]
  - Device leakage [Unknown]
  - Upper respiratory tract infection [Unknown]
  - Dizziness [Not Recovered/Not Resolved]
  - Syncope [Recovered/Resolved]
  - Loss of consciousness [Unknown]
  - Feeling abnormal [Unknown]
  - Tremor [Unknown]
  - Malaise [Unknown]
  - Dyspnoea [Unknown]
  - Chest pain [Not Recovered/Not Resolved]
  - Presyncope [Recovering/Resolving]
